FAERS Safety Report 8564093-2 (Version None)
Quarter: 2012Q3

REPORT INFORMATION
  Report Type: 
  Country: None (occurrence: None)
  Receive Date: 20120803
  Receipt Date: 20120727
  Transmission Date: 20120928
  Serious: Yes (Hospitalization, Other)
  Sender: FDA-Public Use
  Company Number: US-009507513-1102USA02276

PATIENT

DRUGS (3)
  1. FOSAMAX [Suspect]
     Indication: OSTEOPOROSIS PROPHYLAXIS
     Dosage: 70 MG, QW
     Route: 048
     Dates: start: 19990101, end: 20090101
  2. PREVACID [Concomitant]
     Indication: GASTROOESOPHAGEAL REFLUX DISEASE
     Dates: start: 19990101, end: 20040101
  3. FOSAMAX [Suspect]
     Indication: OSTEOPENIA

REACTIONS (49)
  - CARPAL TUNNEL SYNDROME [None]
  - HYPERLIPIDAEMIA [None]
  - ARTERIOSCLEROSIS CORONARY ARTERY [None]
  - FATIGUE [None]
  - ROTATOR CUFF SYNDROME [None]
  - GASTROOESOPHAGEAL REFLUX DISEASE [None]
  - RASH [None]
  - SPINAL OSTEOARTHRITIS [None]
  - MYOCARDIAL ISCHAEMIA [None]
  - HEART RATE IRREGULAR [None]
  - TYPE 2 DIABETES MELLITUS [None]
  - MITRAL VALVE PROLAPSE [None]
  - HYPERSENSITIVITY [None]
  - COLITIS [None]
  - OEDEMA PERIPHERAL [None]
  - ARTHROPATHY [None]
  - ANGINA PECTORIS [None]
  - LUMBAR SPINAL STENOSIS [None]
  - CELLULITIS [None]
  - EXERCISE LACK OF [None]
  - ARRHYTHMIA [None]
  - FEMUR FRACTURE [None]
  - MYOCARDIAL INFARCTION [None]
  - ROAD TRAFFIC ACCIDENT [None]
  - MUSCULOSKELETAL PAIN [None]
  - HYPOAESTHESIA [None]
  - ARTHRITIS [None]
  - ASTHMA [None]
  - VENOUS THROMBOSIS LIMB [None]
  - HYPERTENSION [None]
  - RHINITIS ALLERGIC [None]
  - HAEMATOMA [None]
  - OSTEOARTHRITIS [None]
  - HYPOTHYROIDISM [None]
  - CATARACT [None]
  - ECZEMA [None]
  - MAMMOGRAM ABNORMAL [None]
  - CHRONIC OBSTRUCTIVE PULMONARY DISEASE [None]
  - BURSITIS [None]
  - CARDIAC MURMUR [None]
  - LYMPHOEDEMA [None]
  - INTERVERTEBRAL DISC DEGENERATION [None]
  - ABSCESS LIMB [None]
  - LUMBAR RADICULOPATHY [None]
  - DERMATITIS CONTACT [None]
  - ANKLE FRACTURE [None]
  - SYNOVITIS [None]
  - ANXIETY [None]
  - LORDOSIS [None]
